FAERS Safety Report 7831243-2 (Version None)
Quarter: 2011Q4

REPORT INFORMATION
  Report Type: 
  Country: None (occurrence: None)
  Receive Date: 20111021
  Receipt Date: 20111017
  Transmission Date: 20120403
  Serious: Yes (Other)
  Sender: FDA-Public Use
  Company Number: BR-ROCHE-686215

PATIENT
  Sex: Female
  Weight: 59 kg

DRUGS (10)
  1. KETOPROFEN [Concomitant]
     Indication: PAIN
     Dosage: START DATE: SEVERAL YEARS
  2. UNSPECIFIED MEDICATION [Concomitant]
  3. CALCORT [Concomitant]
  4. MABTHERA [Suspect]
     Indication: RHEUMATOID ARTHRITIS
     Route: 042
     Dates: start: 20090901, end: 20110401
  5. PREDNISONE [Concomitant]
  6. DORFLEX [Concomitant]
  7. MABTHERA [Suspect]
     Route: 042
     Dates: start: 20080301, end: 20080301
  8. MABTHERA [Suspect]
     Dosage: DOSE: 500MG/50ML
     Route: 042
     Dates: start: 20090914, end: 20090922
  9. ACTEMRA [Suspect]
     Indication: RHEUMATOID ARTHRITIS
     Route: 042
  10. SULFADIAZINE [Concomitant]

REACTIONS (8)
  - ILL-DEFINED DISORDER [None]
  - DRY SKIN [None]
  - MUSCLE ATROPHY [None]
  - ARTHRALGIA [None]
  - PAIN [None]
  - DRUG INEFFECTIVE [None]
  - PAIN IN EXTREMITY [None]
  - MUSCULOSKELETAL DISORDER [None]
